FAERS Safety Report 9685508 (Version 1)
Quarter: 2013Q4

REPORT INFORMATION
  Report Type: Spontaneous
  Country: US (occurrence: US)
  Receive Date: 20131113
  Receipt Date: 20131113
  Transmission Date: 20140711
  Serious: Yes (Other)
  Sender: FDA-Public Use
  Company Number: US-SA-2013SA116878

PATIENT
  Age: 80 Year
  Sex: Male
  Weight: 81 kg

DRUGS (11)
  1. PLAVIX [Suspect]
     Route: 065
  2. ELIQUIS [Concomitant]
  3. SYNTHROID [Concomitant]
  4. ARICEPT [Concomitant]
  5. KLOR-CON [Concomitant]
  6. LIPITOR [Concomitant]
  7. DIOVANE [Concomitant]
  8. LOTREL [Concomitant]
  9. FUROSEMIDE [Concomitant]
  10. METOPROLOL [Concomitant]
  11. CLONIDINE [Concomitant]

REACTIONS (1)
  - Mass [Unknown]
